FAERS Safety Report 8554898-6 (Version None)
Quarter: 2012Q3

REPORT INFORMATION
  Report Type: 
  Country: None (occurrence: None)
  Receive Date: 20120731
  Receipt Date: 20120723
  Transmission Date: 20120928
  Serious: Yes (Hospitalization, Other)
  Sender: FDA-Public Use
  Company Number: US-ELI_LILLY_AND_COMPANY-US201206002098

PATIENT
  Sex: Female

DRUGS (11)
  1. ASPIRIN [Concomitant]
     Dosage: UNK
  2. NORVASC [Concomitant]
     Dosage: UNK
  3. STOOL SOFTENER [Concomitant]
     Dosage: UNK
  4. LIPITOR [Concomitant]
     Dosage: UNK
  5. LUCENTIS [Concomitant]
     Indication: MACULAR DEGENERATION
     Dosage: UNK, MONTHLY (1/M)
  6. FORTEO [Suspect]
     Indication: OSTEOPOROSIS
     Dosage: 20 UG, QD
     Dates: start: 20111025
  7. PLAVIX [Concomitant]
     Dosage: UNK
  8. METOPROLOL TARTRATE [Concomitant]
     Dosage: UNK
  9. BUMETANIDE [Concomitant]
     Indication: FLUID RETENTION
     Dosage: UNK
  10. LACTULOSE [Concomitant]
     Dosage: UNK
  11. FERROUS SULFATE TAB [Concomitant]
     Indication: MINERAL SUPPLEMENTATION
     Dosage: UNK

REACTIONS (10)
  - PYREXIA [None]
  - DIARRHOEA [None]
  - GOUT [None]
  - HIP FRACTURE [None]
  - URINARY RETENTION [None]
  - DECUBITUS ULCER [None]
  - FALL [None]
  - CHILLS [None]
  - BLOOD IRON DECREASED [None]
  - ARTHRALGIA [None]
